FAERS Safety Report 9940053 (Version 1)
Quarter: 2014Q1

REPORT INFORMATION
  Report Type: Spontaneous
  Country: US (occurrence: US)
  Receive Date: 20140303
  Receipt Date: 20140303
  Transmission Date: 20141002
  Serious: No
  Sender: FDA-Public Use
  Company Number: US-ABBVIE-13P-163-1035236-00

PATIENT
  Age: 29 Year
  Sex: Male
  Weight: 70.37 kg

DRUGS (3)
  1. HUMIRA PEN [Suspect]
     Indication: PSORIASIS
     Route: 058
     Dates: start: 20121207, end: 20121207
  2. HUMIRA PEN [Suspect]
     Route: 058
     Dates: start: 20121214, end: 20130109
  3. CLOBEX [Concomitant]
     Indication: PSORIASIS

REACTIONS (1)
  - Psoriasis [Not Recovered/Not Resolved]
